FAERS Safety Report 8519237-5 (Version None)
Quarter: 2012Q3

REPORT INFORMATION
  Report Type: 
  Country: None (occurrence: None)
  Receive Date: 20120718
  Receipt Date: 20120709
  Transmission Date: 20120928
  Serious: Yes (Hospitalization, Disabling, Other)
  Sender: FDA-Public Use
  Company Number: FR-JNJFOC-20110710623

PATIENT
  Sex: Male
  Weight: 83 kg

DRUGS (3)
  1. XARELTO [Suspect]
     Indication: HIP ARTHROPLASTY
     Route: 048
     Dates: start: 20110501, end: 20110513
  2. CEREBREX [Concomitant]
     Dates: start: 20110507, end: 20120512
  3. XARELTO [Suspect]
     Indication: THROMBOSIS PROPHYLAXIS
     Route: 048
     Dates: start: 20110501, end: 20110513

REACTIONS (6)
  - HEADACHE [None]
  - FACIAL PARESIS [None]
  - MONOPARESIS [None]
  - CEREBROVASCULAR ACCIDENT [None]
  - DYSARTHRIA [None]
  - CEREBRAL HAEMATOMA [None]
